FAERS Safety Report 12836874 (Version 4)
Quarter: 2017Q3

REPORT INFORMATION
  Report Type: Spontaneous
  Country: US (occurrence: US)
  Receive Date: 20161011
  Receipt Date: 20170817
  Transmission Date: 20171127
  Serious: Yes (Other)
  Sender: FDA-Public Use
  Company Number: US-SAOL THERAPEUTICS-2016SAO00782

PATIENT
  Sex: Female

DRUGS (3)
  1. BACLOFEN. [Suspect]
     Active Substance: BACLOFEN
     Dosage: 558 ?G, \DAY
     Route: 037
     Dates: start: 2017, end: 2017
  2. BACLOFEN. [Suspect]
     Active Substance: BACLOFEN
     Dosage: 400 ?G, \DAY
     Route: 037
     Dates: start: 2017, end: 2017
  3. BACLOFEN. [Suspect]
     Active Substance: BACLOFEN
     Indication: MUSCLE SPASTICITY
     Dosage: 400.28 ?G, \DAY
     Route: 037

REACTIONS (5)
  - Intervertebral disc protrusion [Recovered/Resolved]
  - Somnolence [Unknown]
  - Overdose [Unknown]
  - Loss of consciousness [Unknown]
  - Amnesia [Unknown]

NARRATIVE: CASE EVENT DATE: 2016
